FAERS Safety Report 25998333 (Version 1)
Quarter: 2025Q4

REPORT INFORMATION
  Report Type: Report from Study
  Country: US (occurrence: US)
  Receive Date: 20251105
  Receipt Date: 20251105
  Transmission Date: 20260118
  Serious: Yes (Other)
  Sender: ABBVIE
  Company Number: US-ABBVIE-6459654

PATIENT
  Age: 66 Year
  Sex: Male

DRUGS (6)
  1. SKYRIZI [Suspect]
     Active Substance: RISANKIZUMAB-RZAA
     Indication: Colitis ulcerative
     Route: 042
     Dates: start: 20250401, end: 20250401
  2. SKYRIZI [Suspect]
     Active Substance: RISANKIZUMAB-RZAA
     Indication: Colitis ulcerative
     Route: 042
     Dates: start: 20250507
  3. SKYRIZI [Suspect]
     Active Substance: RISANKIZUMAB-RZAA
     Indication: Colitis ulcerative
     Route: 042
     Dates: start: 202506
  4. SKYRIZI [Suspect]
     Active Substance: RISANKIZUMAB-RZAA
     Indication: Colitis ulcerative
     Route: 042
     Dates: start: 20250512
  5. SKYRIZI [Suspect]
     Active Substance: RISANKIZUMAB-RZAA
     Indication: Colitis ulcerative
     Route: 042
     Dates: start: 20250501
  6. PREDNISONE [Suspect]
     Active Substance: PREDNISONE
     Indication: Product used for unknown indication
     Route: 065
     Dates: start: 2025

REACTIONS (32)
  - Polyp [Not Recovered/Not Resolved]
  - Confusional state [Unknown]
  - Peripheral swelling [Not Recovered/Not Resolved]
  - Abdominal pain [Not Recovered/Not Resolved]
  - Back disorder [Unknown]
  - Musculoskeletal disorder [Unknown]
  - Neck pain [Not Recovered/Not Resolved]
  - Brain fog [Unknown]
  - Drug ineffective [Unknown]
  - Protein total increased [Unknown]
  - Product administration error [Unknown]
  - Defaecation urgency [Unknown]
  - Pain in extremity [Unknown]
  - Swelling [Not Recovered/Not Resolved]
  - Skin atrophy [Unknown]
  - Skin laceration [Unknown]
  - Muscle atrophy [Unknown]
  - Inflammation [Recovered/Resolved]
  - Joint swelling [Unknown]
  - Stress [Unknown]
  - Insomnia [Unknown]
  - Arthralgia [Unknown]
  - Precancerous condition [Unknown]
  - Gastrointestinal inflammation [Unknown]
  - Gastrointestinal viral infection [Unknown]
  - Spinal operation [Unknown]
  - Panic attack [Not Recovered/Not Resolved]
  - Hallucination [Unknown]
  - Nightmare [Unknown]
  - Neck surgery [Unknown]
  - Inflammation [Not Recovered/Not Resolved]
  - Colitis [Unknown]

NARRATIVE: CASE EVENT DATE: 20250101
